FAERS Safety Report 18292993 (Version 2)
Quarter: 2020Q4

REPORT INFORMATION
  Report Type: Report from Study
  Country: None (occurrence: AU)
  Receive Date: 20200922
  Receipt Date: 20201019
  Transmission Date: 20210113
  Serious: Yes (Hospitalization)
  Sender: FDA-Public Use
  Company Number: AU-ABBVIE-20K-008-3567073-00

PATIENT
  Age: 64 Year
  Sex: Male

DRUGS (3)
  1. DUODOPA [Suspect]
     Active Substance: CARBIDOPA\LEVODOPA
     Dosage: CR 6.0 ML/HR
     Route: 050
     Dates: start: 202009, end: 20200912
  2. DUODOPA [Suspect]
     Active Substance: CARBIDOPA\LEVODOPA
     Dosage: CR 4.5 MLS/HR
     Route: 050
     Dates: start: 202009, end: 20201014
  3. DUODOPA [Suspect]
     Active Substance: CARBIDOPA\LEVODOPA
     Indication: PARKINSON^S DISEASE
     Dosage: 7.0 ML/HR,16 HR THERAPY
     Route: 050
     Dates: start: 20200901, end: 202009

REACTIONS (6)
  - Head injury [Unknown]
  - Haematoma [Unknown]
  - Gait disturbance [Unknown]
  - Impaired quality of life [Unknown]
  - Therapeutic product effect incomplete [Unknown]
  - Fall [Unknown]

NARRATIVE: CASE EVENT DATE: 2020
